FAERS Safety Report 17566737 (Version 7)
Quarter: 2024Q3

REPORT INFORMATION
  Report Type: Report from Study
  Country: GB (occurrence: GB)
  Receive Date: 20200320
  Receipt Date: 20240715
  Transmission Date: 20241016
  Serious: Yes (Other)
  Sender: AEGERION
  Company Number: GB-AEGERION PHARMACEUTICAL, INC-AEGR004746

PATIENT

DRUGS (11)
  1. JUXTAPID [Suspect]
     Active Substance: LOMITAPIDE MESYLATE
     Indication: Type IIa hyperlipidaemia
     Dosage: 5 MG, QD
     Route: 048
     Dates: start: 20190226, end: 20190903
  2. JUXTAPID [Suspect]
     Active Substance: LOMITAPIDE MESYLATE
     Dosage: 10 MG, QD
     Route: 048
     Dates: start: 20190904, end: 20191113
  3. JUXTAPID [Suspect]
     Active Substance: LOMITAPIDE MESYLATE
     Dosage: 5 MG, QD
     Route: 048
     Dates: start: 20200110, end: 20200212
  4. TIOCONAZOLE [Suspect]
     Active Substance: TIOCONAZOLE
     Indication: Antifungal treatment
     Dosage: UNK
     Route: 061
     Dates: start: 201911, end: 2019
  5. OMEGA 3,6,9 [Concomitant]
     Indication: Supplementation therapy
     Dosage: 1 CAPSULE, QD
     Route: 048
     Dates: start: 20190226
  6. COLESEVELAM [Concomitant]
     Active Substance: COLESEVELAM
     Indication: Hypercholesterolaemia
     Dosage: 625 MG, QD
     Route: 048
     Dates: start: 20200103
  7. EZETIMIBE [Concomitant]
     Active Substance: EZETIMIBE
     Indication: Hypercholesterolaemia
     Dosage: 10 MG, QD
     Route: 048
     Dates: start: 2014
  8. ASPIRIN [Concomitant]
     Active Substance: ASPIRIN
     Indication: Coronary artery disease
     Dosage: 75 MG, QD
     Route: 048
     Dates: start: 1997
  9. BISOPROLOL [Concomitant]
     Active Substance: BISOPROLOL\BISOPROLOL FUMARATE
     Indication: Coronary artery disease
     Dosage: 2.5 MG, QD
     Route: 048
     Dates: start: 2012
  10. ROSUVASTATIN [Concomitant]
     Active Substance: ROSUVASTATIN
     Indication: Hypercholesterolaemia
     Dosage: 40 MG, QD
     Route: 048
     Dates: start: 2011
  11. TOCOPHEROL [Concomitant]
     Active Substance: TOCOPHEROL
     Indication: Supplementation therapy
     Dosage: 400 IU, QD
     Route: 048
     Dates: start: 20190226

REACTIONS (7)
  - Liver function test increased [Recovered/Resolved]
  - Liver function test increased [Recovered/Resolved]
  - Alanine aminotransferase increased [Recovered/Resolved]
  - Drug interaction [Recovered/Resolved]
  - Therapy cessation [Unknown]
  - Labelled drug-drug interaction medication error [Unknown]
  - Contraindicated product administered [Unknown]

NARRATIVE: CASE EVENT DATE: 20191025
